FAERS Safety Report 7027218-6 (Version None)
Quarter: 2010Q4

REPORT INFORMATION
  Report Type: 
  Country: None (occurrence: None)
  Receive Date: 20101004
  Receipt Date: 20100920
  Transmission Date: 20110411
  Serious: Yes (Hospitalization)
  Sender: FDA-Public Use
  Company Number: TW-MYLANLABS-2010S1017193

PATIENT
  Age: 55 Year
  Sex: Male

DRUGS (2)
  1. LAGERSTROEMIA SPECIOSA [Interacting]
     Dosage: DAILY
     Route: 065
  2. DICLOFENAC SODIUM [Suspect]
     Indication: ARTHRALGIA
     Dosage: DAILY
     Route: 065

REACTIONS (7)
  - DECREASED APPETITE [None]
  - DRUG INTERACTION [None]
  - HAEMODIALYSIS [None]
  - HYPOPERFUSION [None]
  - LACTIC ACIDOSIS [None]
  - METABOLIC ACIDOSIS [None]
  - RENAL FAILURE ACUTE [None]
